FAERS Safety Report 7881339-4 (Version None)
Quarter: 2011Q4

REPORT INFORMATION
  Report Type: 
  Country: None (occurrence: None)
  Receive Date: 20111101
  Receipt Date: 20110526
  Transmission Date: 20120403
  Serious: No
  Sender: FDA-Public Use
  Company Number: US-AMGEN-USASP2011027486

PATIENT
  Age: 46 Year
  Weight: 85.714 kg

DRUGS (6)
  1. EXFORGE [Concomitant]
  2. OMEPRAZOLE [Concomitant]
     Dosage: 10 MG, UNK
  3. ENBREL [Suspect]
     Indication: PRODUCT USED FOR UNKNOWN INDICATION
     Dosage: 50 MG, QWK
  4. JANUVIA [Concomitant]
     Dosage: 25 MG, UNK
  5. AMBIEN [Concomitant]
     Dosage: 5 MG, UNK
  6. IBUPROFEN [Concomitant]
     Dosage: 200 MG, UNK

REACTIONS (4)
  - OROPHARYNGEAL PAIN [None]
  - CHILLS [None]
  - PYREXIA [None]
  - NASOPHARYNGITIS [None]
